FAERS Safety Report 7166542-3 (Version None)
Quarter: 2010Q4

REPORT INFORMATION
  Report Type: 
  Country: None (occurrence: None)
  Receive Date: 20101216
  Receipt Date: 20101207
  Transmission Date: 20110411
  Serious: Yes (Disabling)
  Sender: FDA-Public Use
  Company Number: PHHY2010US76537

PATIENT
  Sex: Male

DRUGS (5)
  1. EXTAVIA [Suspect]
     Indication: MULTIPLE SCLEROSIS
     Dosage: 0.3 MG, QOD
     Route: 058
     Dates: start: 20100616
  2. EXTAVIA [Suspect]
     Dosage: 0.1875 MG, QOD
     Route: 058
     Dates: start: 20100930, end: 20101109
  3. NALTREXONE HYDROCHLORIDE [Concomitant]
     Dosage: 4.5 MG, QHS
  4. DIAZEPAM [Concomitant]
     Dosage: 2 MG, QHS
  5. PREDNISONE [Concomitant]
     Dosage: 2400 MG, ONCE A MONTH

REACTIONS (11)
  - ARTHRALGIA [None]
  - BALANCE DISORDER [None]
  - FEELING ABNORMAL [None]
  - HEADACHE [None]
  - INJECTION SITE ERYTHEMA [None]
  - MENTAL IMPAIRMENT [None]
  - MOBILITY DECREASED [None]
  - MYALGIA [None]
  - PAIN [None]
  - PYREXIA [None]
  - VISUAL IMPAIRMENT [None]
